FAERS Safety Report 6715462-4 (Version None)
Quarter: 2010Q2

REPORT INFORMATION
  Report Type: 
  Country: None (occurrence: None)
  Receive Date: 20100507
  Receipt Date: 20100423
  Transmission Date: 20101027
  Serious: Yes (Hospitalization)
  Sender: FDA-Public Use
  Company Number: PHHY2010RO26060

PATIENT
  Sex: Male

DRUGS (4)
  1. ZOMETA [Suspect]
     Indication: MULTIPLE MYELOMA
     Dosage: 4 MG, QMO
  2. DEXAMETHASONE SODIUM PHOSPHATE [Concomitant]
  3. ALKERAN [Concomitant]
  4. PREDNISONE [Concomitant]

REACTIONS (1)
  - OSTEONECROSIS OF JAW [None]
